FAERS Safety Report 23267935 (Version 2)
Quarter: 2023Q4

REPORT INFORMATION
  Report Type: Other
  Country: CA (occurrence: None)
  Receive Date: 20231206
  Receipt Date: 20231214
  Transmission Date: 20240110
  Serious: Yes (Other)
  Sender: FDA-Public Use
  Company Number: CA-ROCHE-3196321

PATIENT
  Age: 43 Year
  Sex: Female

DRUGS (5)
  1. OCREVUS [Suspect]
     Active Substance: OCRELIZUMAB
     Indication: Relapsing-remitting multiple sclerosis
     Dosage: 300 MG AT DAY 0 AND 14, THEN 600 MG EVERY 6 MONTH
     Route: 042
     Dates: start: 20220920
  2. INDAPAMIDE [Concomitant]
     Active Substance: INDAPAMIDE
  3. LASIX [Concomitant]
     Active Substance: FUROSEMIDE
  4. CORTISONE [Concomitant]
     Active Substance: CORTISONE
  5. OXYCODONE HYDROCHLORIDE [Concomitant]
     Active Substance: OXYCODONE HYDROCHLORIDE

REACTIONS (15)
  - Haemorrhage [Unknown]
  - Nerve compression [Not Recovered/Not Resolved]
  - Infusion related reaction [Unknown]
  - Hypertension [Not Recovered/Not Resolved]
  - Peripheral swelling [Unknown]
  - Anxiety [Unknown]
  - Gait disturbance [Unknown]
  - Migraine [Unknown]
  - Infusion related reaction [Unknown]
  - Post procedural swelling [Unknown]
  - Amnesia [Unknown]
  - Fatigue [Unknown]
  - Insomnia [Unknown]
  - Pain [Unknown]
  - SARS-CoV-2 test positive [Not Recovered/Not Resolved]

NARRATIVE: CASE EVENT DATE: 20220920
